FAERS Safety Report 5079000-7 (Version None)
Quarter: 2006Q3

REPORT INFORMATION
  Report Type: 
  Country: None (occurrence: None)
  Receive Date: 20060814
  Receipt Date: 20060411
  Transmission Date: 20061208
  Serious: Yes (Other)
  Sender: FDA-Public Use
  Company Number: PHRM2006FR01341

PATIENT
  Age: 69 Year
  Sex: Female
  Weight: 65 kg

DRUGS (3)
  1. STALEVO 100 [Suspect]
     Indication: PARKINSON'S DISEASE
     Dosage: 200/100/25 MG X4/DAY
     Route: 048
     Dates: start: 20060307, end: 20060330
  2. REQUIP [Concomitant]
     Dosage: 20 MG/DAY
     Dates: start: 20050501
  3. MODAFINIL [Suspect]
     Indication: PARKINSON'S DISEASE
     Dosage: 100 MG/DAY
     Route: 048
     Dates: start: 20051101

REACTIONS (3)
  - ATRIAL FIBRILLATION [None]
  - DYSPNOEA EXERTIONAL [None]
  - HYPOTENSION [None]
